FAERS Safety Report 4654734-4 (Version None)
Quarter: 2005Q2

REPORT INFORMATION
  Report Type: 
  Country: None (occurrence: None)
  Receive Date: 20050506
  Receipt Date: 20050420
  Transmission Date: 20051028
  Serious: Yes (Hospitalization)
  Sender: FDA-Public Use
  Company Number: DE-JNJFOC-20050306186

PATIENT
  Age: 65 Year
  Sex: Female

DRUGS (4)
  1. INFLIXIMAB [Suspect]
     Indication: RHEUMATOID ARTHRITIS
     Route: 042
  2. ARAVA [Concomitant]
     Indication: RHEUMATOID ARTHRITIS
  3. PREDNISOLONE [Concomitant]
     Indication: DRUG USE FOR UNKNOWN INDICATION
  4. DELIX [Concomitant]
     Indication: HYPERTENSION

REACTIONS (7)
  - ALOPECIA [None]
  - CEREBROVASCULAR ACCIDENT [None]
  - CONVULSION [None]
  - COUGH [None]
  - INFLUENZA [None]
  - PAIN IN EXTREMITY [None]
  - PNEUMONIA [None]
